FAERS Safety Report 9634033 (Version 2)
Quarter: 2014Q1

REPORT INFORMATION
  Report Type: Spontaneous
  Country: US (occurrence: US)
  Receive Date: 20131021
  Receipt Date: 20140120
  Transmission Date: 20141002
  Serious: No
  Sender: FDA-Public Use
  Company Number: US-009507513-1310USA007467

PATIENT
  Age: 25 Year
  Sex: Female
  Weight: 103.4 kg

DRUGS (2)
  1. NEXPLANON [Suspect]
     Dosage: 68 MG/ 1 ROD EVERY THREE YEARS
     Route: 059
     Dates: start: 20131009, end: 20131009
  2. NEXPLANON [Suspect]
     Dosage: 68MG/ 1 ROD EVERY THREE YEARS
     Route: 059
     Dates: start: 20131009

REACTIONS (4)
  - Device kink [Recovered/Resolved]
  - Device difficult to use [Recovered/Resolved]
  - Device expulsion [Recovered/Resolved]
  - No adverse event [Unknown]
